FAERS Safety Report 19021666 (Version 1)
Quarter: 2021Q1

REPORT INFORMATION
  Report Type: Report from Study
  Country: None (occurrence: CA)
  Receive Date: 20210318
  Receipt Date: 20210318
  Transmission Date: 20210420
  Serious: Yes (Other)
  Sender: FDA-Public Use
  Company Number: CA-ABBVIE-21K-028-3813743-00

PATIENT
  Sex: Female

DRUGS (2)
  1. HUMIRA [Suspect]
     Active Substance: ADALIMUMAB
     Indication: RHEUMATOID ARTHRITIS
     Route: 058
     Dates: start: 20200416
  2. CORTISONE [Suspect]
     Active Substance: CORTISONE
     Indication: RASH PAPULAR
     Route: 058

REACTIONS (3)
  - Urine odour abnormal [Not Recovered/Not Resolved]
  - Limb mass [Recovered/Resolved]
  - Arthritis [Recovered/Resolved]
